FAERS Safety Report 16591395 (Version 2)
Quarter: 2019Q3

REPORT INFORMATION
  Report Type: Spontaneous
  Country: CN (occurrence: CN)
  Receive Date: 20190718
  Receipt Date: 20190722
  Transmission Date: 20191004
  Serious: Yes (Death, Hospitalization, Disabling, Other)
  Sender: FDA-Public Use
  Company Number: CN-PFIZER INC-2019303416

PATIENT
  Age: 52 Year
  Sex: Male
  Weight: 80 kg

DRUGS (2)
  1. METHOTREXATE. [Suspect]
     Active Substance: METHOTREXATE
     Indication: ACUTE LYMPHOCYTIC LEUKAEMIA
     Dosage: 5.7 G, UNK (ONCE PER TWO DAYS)
     Route: 041
     Dates: start: 20190703, end: 20190704
  2. SODIUM CHLORIDE. [Concomitant]
     Active Substance: SODIUM CHLORIDE
     Indication: ACUTE LYMPHOCYTIC LEUKAEMIA
     Dosage: 2100 ML ONCE PER TWO DAYS
     Route: 041
     Dates: start: 20190703, end: 20190704

REACTIONS (5)
  - Stomatitis [Fatal]
  - Off label use [Unknown]
  - Nephropathy toxic [Unknown]
  - Prescribed overdose [Unknown]
  - Renal failure [Fatal]

NARRATIVE: CASE EVENT DATE: 201907
